FAERS Safety Report 18359869 (Version 2)
Quarter: 2020Q4

REPORT INFORMATION
  Report Type: Spontaneous
  Country: US (occurrence: US)
  Receive Date: 20201008
  Receipt Date: 20201014
  Transmission Date: 20210114
  Serious: Yes (Death, Hospitalization)
  Sender: FDA-Public Use
  Company Number: US-PFIZER INC-2020387765

PATIENT
  Age: 68 Year
  Sex: Female

DRUGS (1)
  1. IBRANCE [Suspect]
     Active Substance: PALBOCICLIB
     Indication: BREAST CANCER FEMALE
     Dosage: 125 MG
     Dates: start: 20200306

REACTIONS (1)
  - Death [Fatal]
